FAERS Safety Report 6718311-3 (Version None)
Quarter: 2010Q2

REPORT INFORMATION
  Report Type: 
  Country: None (occurrence: None)
  Receive Date: 20100505
  Receipt Date: 20070905
  Transmission Date: 20101027
  Serious: Yes (Hospitalization, Disabling)
  Sender: FDA-Public Use
  Company Number: 2009-3214

PATIENT
  Age: 75 Year
  Sex: Male

DRUGS (4)
  1. APOKYN [Suspect]
     Indication: PARKINSON'S DISEASE
     Dosage: SEE IMAGE
     Route: 058
     Dates: start: 20070101, end: 20070101
  2. APOKYN [Suspect]
     Indication: PARKINSON'S DISEASE
     Dosage: SEE IMAGE
     Route: 058
     Dates: start: 20070615, end: 20070101
  3. APOKYN [Suspect]
     Indication: PARKINSON'S DISEASE
     Dosage: SEE IMAGE
     Route: 058
     Dates: start: 20070101, end: 20070801
  4. TRAZODONE (TRAZODONE) (TRAZODONE) [Concomitant]

REACTIONS (9)
  - ACTIVITIES OF DAILY LIVING IMPAIRED [None]
  - CONDITION AGGRAVATED [None]
  - LETHARGY [None]
  - MOVEMENT DISORDER [None]
  - NEPHROLITHIASIS [None]
  - PARKINSON'S DISEASE [None]
  - POSTURE ABNORMAL [None]
  - SOMNOLENCE [None]
  - VENTRICULAR EXTRASYSTOLES [None]
